FAERS Safety Report 10337832 (Version 1)
Quarter: 2014Q3

REPORT INFORMATION
  Report Type: Spontaneous
  Country: US (occurrence: None)
  Receive Date: 20140723
  Receipt Date: 20140723
  Transmission Date: 20150326
  Serious: No
  Sender: FDA-Public Use
  Company Number: None

PATIENT

DRUGS (1)
  1. ELITEK [Suspect]
     Active Substance: RASBURICASE
     Dosage: INJECTABLE IV INJECTION 1.5MG
     Route: 042

REACTIONS (4)
  - Circumstance or information capable of leading to medication error [None]
  - Product reconstitution issue [None]
  - Product label confusion [None]
  - Drug administration error [None]
